FAERS Safety Report 17011961 (Version 3)
Quarter: 2019Q4

REPORT INFORMATION
  Report Type: Spontaneous
  Country: US (occurrence: US)
  Receive Date: 20191108
  Receipt Date: 20191213
  Transmission Date: 20200122
  Serious: Yes (Hospitalization, Other)
  Sender: FDA-Public Use
  Company Number: US-AKCEA THERAPEUTICS-2019IS001759

PATIENT

DRUGS (1)
  1. TEGSEDI [Suspect]
     Active Substance: INOTERSEN SODIUM
     Indication: HEREDITARY NEUROPATHIC AMYLOIDOSIS
     Dosage: 284 MG, QW
     Route: 065

REACTIONS (8)
  - Autoimmune hepatitis [Unknown]
  - Aspartate aminotransferase increased [Unknown]
  - Liver function test increased [Unknown]
  - Blood bilirubin increased [Unknown]
  - Jaundice [Not Recovered/Not Resolved]
  - Biopsy liver [Unknown]
  - Alanine aminotransferase increased [Unknown]
  - Cardiac pacemaker insertion [Unknown]

NARRATIVE: CASE EVENT DATE: 201909
